FAERS Safety Report 15567765 (Version 1)
Quarter: 2018Q4

REPORT INFORMATION
  Report Type: Spontaneous
  Country: US (occurrence: US)
  Receive Date: 20181030
  Receipt Date: 20181030
  Transmission Date: 20190205
  Serious: Yes (Other)
  Sender: FDA-Public Use
  Company Number: US-IMPAX LABORATORIES, LLC-2018-IPXL-03511

PATIENT
  Age: 46 Year
  Sex: Female

DRUGS (5)
  1. METHYLPREDNISOLONE. [Concomitant]
     Active Substance: METHYLPREDNISOLONE
     Indication: DERMATOMYOSITIS
     Dosage: 6 MILLIGRAM, DAILY
     Route: 048
  2. ADRENACLICK [Suspect]
     Active Substance: EPINEPHRINE
     Indication: GASTROINTESTINAL HAEMORRHAGE
     Dosage: UNK
     Route: 065
  3. MYCOPHENOLATE [Concomitant]
     Active Substance: MYCOPHENOLIC ACID
     Indication: DERMATOMYOSITIS
     Dosage: 1500 MILLIGRAM, DAILY
     Route: 065
  4. ADRENACLICK [Suspect]
     Active Substance: EPINEPHRINE
     Indication: PRODUCT USE IN UNAPPROVED INDICATION
  5. CYCLOSPORINE. [Concomitant]
     Active Substance: CYCLOSPORINE
     Indication: DERMATOMYOSITIS
     Dosage: 100 MILLIGRAM, DAILY
     Route: 065

REACTIONS (3)
  - Cardiac arrest [Unknown]
  - Drug ineffective for unapproved indication [Unknown]
  - Circulatory collapse [Unknown]
